FAERS Safety Report 23161106 (Version 2)
Quarter: 2023Q4

REPORT INFORMATION
  Report Type: Spontaneous
  Country: PT (occurrence: PT)
  Receive Date: 20231108
  Receipt Date: 20231114
  Transmission Date: 20240109
  Serious: Yes (Other)
  Sender: FDA-Public Use
  Company Number: PT-009507513-2011PRT004246

PATIENT
  Age: 60 Year
  Sex: Male

DRUGS (8)
  1. AXITINIB [Suspect]
     Active Substance: AXITINIB
     Indication: Renal cell carcinoma
     Dosage: 5 MILLIGRAM / 2 X DAY
     Route: 048
     Dates: start: 202006, end: 20201017
  2. AXITINIB [Suspect]
     Active Substance: AXITINIB
     Indication: Renal cell carcinoma
     Dosage: 3 MILLIGRAM / 2 X DAY
     Route: 048
     Dates: start: 20201018, end: 2020
  3. AXITINIB [Suspect]
     Active Substance: AXITINIB
     Dosage: UNK
     Dates: end: 202201
  4. AXITINIB [Suspect]
     Active Substance: AXITINIB
     Dosage: UNK
  5. AXITINIB [Suspect]
     Active Substance: AXITINIB
     Dosage: UNK
     Dates: end: 202201
  6. AXITINIB [Suspect]
     Active Substance: AXITINIB
     Dosage: UNK
     Route: 065
     Dates: start: 20220122
  7. PEMBROLIZUMAB [Suspect]
     Active Substance: PEMBROLIZUMAB
     Indication: Renal cell carcinoma
     Dosage: 200 MILLIGRAM, Q3W
     Route: 042
     Dates: start: 202006
  8. CABOZANTINIB [Suspect]
     Active Substance: CABOZANTINIB
     Dosage: UNK
     Dates: start: 202209

REACTIONS (9)
  - Drug-induced liver injury [Unknown]
  - Drug-induced liver injury [Unknown]
  - Neoplasm progression [Unknown]
  - Dysphonia [Unknown]
  - Diarrhoea [Unknown]
  - Fatigue [Unknown]
  - Dry skin [Unknown]
  - Stomatitis [Unknown]
  - Hepatic steatosis [Unknown]

NARRATIVE: CASE EVENT DATE: 20200101
